FAERS Safety Report 7681389-7 (Version None)
Quarter: 2011Q3

REPORT INFORMATION
  Report Type: 
  Country: None (occurrence: None)
  Receive Date: 20110812
  Receipt Date: 20110809
  Transmission Date: 20111222
  Serious: Yes (Life-Threatening, Other)
  Sender: FDA-Public Use
  Company Number: GB-CELGENEUS-167-21880-11081173

PATIENT
  Age: 69 Year
  Sex: Male

DRUGS (6)
  1. DEXAMETHASONE [Concomitant]
     Route: 065
  2. ZOLEDRONIC ACID [Concomitant]
     Route: 065
  3. REVLIMID [Suspect]
     Route: 048
  4. MXL [Concomitant]
     Route: 065
  5. OMEPRAZOLE [Concomitant]
     Route: 065
  6. QUININE SULFATE [Concomitant]
     Route: 065

REACTIONS (1)
  - TREATMENT RELATED SECONDARY MALIGNANCY [None]
